FAERS Safety Report 23409710 (Version 2)
Quarter: 2024Q1

REPORT INFORMATION
  Report Type: Spontaneous
  Country: GB (occurrence: GB)
  Receive Date: 20240117
  Receipt Date: 20240122
  Transmission Date: 20240410
  Serious: Yes (Death, Hospitalization, Other)
  Sender: FDA-Public Use
  Company Number: GB-PFIZER INC-PV202400005586

PATIENT
  Age: 69 Year
  Sex: Male

DRUGS (2)
  1. SULFASALAZINE [Suspect]
     Active Substance: SULFASALAZINE
     Indication: Rheumatoid arthritis
     Dosage: 500 MG, DAILY
  2. SULFASALAZINE [Suspect]
     Active Substance: SULFASALAZINE
     Dosage: INCREMENT OF 500 MG EVERY WEEK UNTIL 2 G/DAY

REACTIONS (7)
  - Neutropenic colitis [Fatal]
  - Peripheral circulatory failure [Fatal]
  - Lower respiratory tract infection [Unknown]
  - Rectal haemorrhage [Unknown]
  - Gastrointestinal haemorrhage [Unknown]
  - Tracheo-oesophageal fistula [Unknown]
  - Off label use [Unknown]
